FAERS Safety Report 4706493-4 (Version None)
Quarter: 2005Q3

REPORT INFORMATION
  Report Type: 
  Country: None (occurrence: None)
  Receive Date: 20050705
  Receipt Date: 20050623
  Transmission Date: 20060218
  Serious: Yes (Hospitalization)
  Sender: FDA-Public Use
  Company Number: FRPFM-E-2005/00066

PATIENT
  Age: 53 Year
  Sex: Male

DRUGS (5)
  1. CIBLOR [Suspect]
     Dosage: 1U PER DAY
     Route: 048
     Dates: start: 20041215, end: 20041215
  2. DOLIPRANE [Concomitant]
     Dates: start: 20041215
  3. PNEUMOREL [Concomitant]
     Dates: start: 20041215
  4. VENTOLIN [Concomitant]
     Indication: ASTHMA
  5. SERETIDE [Concomitant]
     Indication: ASTHMA

REACTIONS (3)
  - ANGIONEUROTIC OEDEMA [None]
  - BRONCHOSPASM [None]
  - URTICARIA [None]
